FAERS Safety Report 5915120-X (Version None)
Quarter: 2008Q4

REPORT INFORMATION
  Report Type: 
  Country: None (occurrence: None)
  Receive Date: 20081010
  Receipt Date: 20081003
  Transmission Date: 20090506
  Serious: Yes (Hospitalization)
  Sender: FDA-Public Use
  Company Number: B0540981A

PATIENT
  Age: 73 Year
  Sex: Male

DRUGS (4)
  1. PAROXETINA [Suspect]
     Dosage: 20MG PER DAY
  2. CLOPIDOGREL [Suspect]
     Dosage: 75MG PER DAY
  3. SSRI [Suspect]
  4. LORAZEPAM [Concomitant]
     Dosage: 1MG PER DAY

REACTIONS (6)
  - DRUG INTERACTION [None]
  - GASTRIC ULCER [None]
  - HAEMATEMESIS [None]
  - HAEMATOCHEZIA [None]
  - SYNCOPE [None]
  - UPPER GASTROINTESTINAL HAEMORRHAGE [None]
